FAERS Safety Report 15675613 (Version 1)
Quarter: 2018Q4

REPORT INFORMATION
  Report Type: Spontaneous
  Country: US (occurrence: US)
  Receive Date: 20181130
  Receipt Date: 20181130
  Transmission Date: 20190205
  Serious: No
  Sender: FDA-Public Use
  Company Number: US-APOTEX-2018AP020423

PATIENT
  Sex: Male

DRUGS (1)
  1. FENTANYL. [Suspect]
     Active Substance: FENTANYL
     Indication: PRODUCT USED FOR UNKNOWN INDICATION
     Dosage: 1 DF, UNK (ONE PATCH EVERY 72 HOURS)
     Route: 062

REACTIONS (5)
  - Nausea [Unknown]
  - Product adhesion issue [Unknown]
  - Extra dose administered [Unknown]
  - Withdrawal syndrome [Unknown]
  - Product substitution issue [Unknown]
